FAERS Safety Report 6470371-3 (Version None)
Quarter: 2009Q4

REPORT INFORMATION
  Report Type: 
  Country: None (occurrence: None)
  Receive Date: 20091202
  Receipt Date: 20091202
  Transmission Date: 20100525
  Serious: Yes (Hospitalization)
  Sender: FDA-Public Use
  Company Number: None

PATIENT
  Age: 82 Year
  Sex: Male
  Weight: 80.1 kg

DRUGS (2)
  1. DILTIAZEM [Suspect]
     Indication: HYPERTENSION
     Dosage: 120 MG AM PO
     Route: 048
     Dates: start: 20080408, end: 20091124
  2. METOPROLOL [Suspect]
     Indication: HYPERTENSION
     Dosage: 12.5 MG BID PO
     Route: 048
     Dates: start: 20091120, end: 20091124

REACTIONS (2)
  - HYPOTENSION [None]
  - SYNCOPE [None]
